FAERS Safety Report 9496115 (Version 1)
Quarter: 2013Q3

REPORT INFORMATION
  Report Type: Report from Study
  Country: FR (occurrence: FR)
  Receive Date: 20130904
  Receipt Date: 20130904
  Transmission Date: 20140515
  Serious: Yes (Hospitalization, Other)
  Sender: FDA-Public Use
  Company Number: FR-MERCK-1308FRA012069

PATIENT
  Sex: Female
  Weight: 84 kg

DRUGS (3)
  1. SITAGLIPTIN PHOSPHATE [Suspect]
     Indication: TYPE 2 DIABETES MELLITUS
     Dosage: 100 MG, QD
     Route: 065
     Dates: start: 20120315
  2. STAGID [Concomitant]
     Dosage: 700 MG, UNK
     Dates: start: 20100920
  3. BYETTA [Concomitant]
     Dosage: UNK
     Dates: start: 20100920, end: 20110610

REACTIONS (1)
  - Chronic lymphocytic leukaemia [Unknown]
